FAERS Safety Report 22722893 (Version 8)
Quarter: 2025Q3

REPORT INFORMATION
  Report Type: Spontaneous
  Country: KR (occurrence: KR)
  Receive Date: 20230719
  Receipt Date: 20250724
  Transmission Date: 20251020
  Serious: Yes (Other)
  Sender: MYLAN
  Company Number: KR-MYLANLABS-2023M1066536

PATIENT
  Age: 67 Year
  Sex: Male
  Weight: 86 kg

DRUGS (14)
  1. LYRICA [Suspect]
     Active Substance: PREGABALIN
     Indication: Burning sensation
  2. LYRICA [Suspect]
     Active Substance: PREGABALIN
     Indication: Hypoaesthesia
     Dosage: 75 MILLIGRAM, BID
     Dates: end: 2023
  3. LYRICA [Suspect]
     Active Substance: PREGABALIN
     Indication: Burning sensation
     Dosage: 300 MILLIGRAM, BID ((BREAKFAST, AND DINNER)
     Dates: start: 20230617
  4. LYRICA [Suspect]
     Active Substance: PREGABALIN
     Indication: Hypoaesthesia
  5. LYRICA [Suspect]
     Active Substance: PREGABALIN
     Indication: Hypoaesthesia
  6. LYRICA [Suspect]
     Active Substance: PREGABALIN
     Indication: Burning sensation
     Dosage: 150 MILLIGRAM, QD
     Dates: end: 2023
  7. EMPAGLIFLOZIN\METFORMIN HYDROCHLORIDE [Concomitant]
     Active Substance: EMPAGLIFLOZIN\METFORMIN HYDROCHLORIDE
     Indication: Diabetes mellitus
     Dosage: 0.1 MILLIGRAM, QD
  8. DAPAGLIFLOZIN [Concomitant]
     Active Substance: DAPAGLIFLOZIN
     Indication: Diabetes mellitus
     Dosage: 10 MILLIGRAM, QD
  9. Pevaro f [Concomitant]
     Indication: Hyperlipidaemia
  10. FEBUXOSTAT [Concomitant]
     Active Substance: FEBUXOSTAT
     Indication: Gout
     Dosage: 40 MILLIGRAM, QD
  11. MAGNESIUM HYDROXIDE [Concomitant]
     Active Substance: MAGNESIUM HYDROXIDE
     Indication: Constipation
  12. BUSPAR [Concomitant]
     Active Substance: BUSPIRONE HYDROCHLORIDE
     Indication: Anxiety
     Dosage: 5 MILLIGRAM, BID (START DATE: 11-JUL-2023)
  13. Antax [Concomitant]
     Indication: Peripheral venous disease
  14. HERBALS\VITIS VINIFERA LEAF [Concomitant]
     Active Substance: HERBALS\VITIS VINIFERA LEAF

REACTIONS (10)
  - Paralysis [Unknown]
  - Glycosylated haemoglobin abnormal [Unknown]
  - Logorrhoea [Unknown]
  - Sensory disturbance [Unknown]
  - Gait disturbance [Unknown]
  - Speech disorder [Unknown]
  - Abnormal behaviour [Not Recovered/Not Resolved]
  - Somnolence [Unknown]
  - Drug ineffective for unapproved indication [Unknown]
  - Chest pain [Unknown]

NARRATIVE: CASE EVENT DATE: 20230617
